FAERS Safety Report 7309018-2 (Version None)
Quarter: 2011Q1

REPORT INFORMATION
  Report Type: 
  Country: None (occurrence: None)
  Receive Date: 20110223
  Receipt Date: 20110120
  Transmission Date: 20110831
  Serious: Yes (Life-Threatening, Hospitalization)
  Sender: FDA-Public Use
  Company Number: US-BAYER-200917598NA

PATIENT
  Sex: Female
  Weight: 69 kg

DRUGS (7)
  1. GAS X [Concomitant]
     Indication: BACK PAIN
  2. ROBITUSSIN CHESTY COUGH [Concomitant]
     Indication: COUGH
     Dosage: UNK
     Dates: start: 20070409
  3. YAZ [Suspect]
     Dosage: UNK
     Dates: end: 20070412
  4. ADVIL COLD [Concomitant]
     Indication: INSOMNIA
     Dosage: UNK UNK, PRN
     Route: 048
     Dates: start: 20070409
  5. GAS X [Concomitant]
     Indication: CHEST PAIN
     Dosage: 4 TABS, QID
     Route: 048
     Dates: start: 20070411
  6. YASMIN [Suspect]
     Indication: CONTRACEPTION
     Dosage: 1 DF, QD
     Route: 048
     Dates: start: 20051017, end: 20061215
  7. BIOTIN [Concomitant]
     Indication: ALOPECIA
     Dosage: 5000 MG, QD
     Dates: start: 20060801, end: 20070401

REACTIONS (9)
  - PULMONARY EMBOLISM [None]
  - BACK PAIN [None]
  - INJURY [None]
  - CHEST PAIN [None]
  - COUGH [None]
  - MUSCULOSKELETAL CHEST PAIN [None]
  - TACHYCARDIA [None]
  - PAIN IN EXTREMITY [None]
  - HYPOAESTHESIA [None]
